FAERS Safety Report 10346324 (Version 2)
Quarter: 2014Q3

REPORT INFORMATION
  Report Type: Spontaneous
  Country: AU (occurrence: AU)
  Receive Date: 20140728
  Receipt Date: 20140819
  Transmission Date: 20150326
  Serious: Yes (Life-Threatening, Hospitalization, Other)
  Sender: FDA-Public Use
  Company Number: AU-PFIZER INC-2014204171

PATIENT
  Age: 62 Year
  Sex: Female

DRUGS (2)
  1. PANADOL [Suspect]
     Active Substance: ACETAMINOPHEN
     Indication: PREOPERATIVE CARE
     Dosage: TWO TABLETS
  2. LYRICA [Suspect]
     Active Substance: PREGABALIN
     Indication: PREOPERATIVE CARE
     Dosage: 150 MG, UNK

REACTIONS (3)
  - Respiratory arrest [Unknown]
  - Malaise [Unknown]
  - Loss of consciousness [Unknown]
